FAERS Safety Report 25031636 (Version 1)
Quarter: 2025Q1

REPORT INFORMATION
  Report Type: Spontaneous
  Country: IT (occurrence: IT)
  Receive Date: 20250303
  Receipt Date: 20250303
  Transmission Date: 20250408
  Serious: Yes (Hospitalization)
  Sender: MYLAN
  Company Number: IT-MYLANLABS-2025M1016984

PATIENT
  Age: 5 Year
  Sex: Male

DRUGS (2)
  1. BUDESONIDE [Suspect]
     Active Substance: BUDESONIDE
     Indication: Protein-losing gastroenteropathy
  2. BUDESONIDE [Suspect]
     Active Substance: BUDESONIDE

REACTIONS (3)
  - Growth failure [Unknown]
  - Adrenal suppression [Unknown]
  - Cushingoid [Unknown]
